FAERS Safety Report 8489629-1 (Version None)
Quarter: 2012Q2

REPORT INFORMATION
  Report Type: 
  Country: None (occurrence: None)
  Receive Date: 20120626
  Receipt Date: 20120618
  Transmission Date: 20120825
  Serious: Yes (Life-Threatening, Hospitalization)
  Sender: FDA-Public Use
  Company Number: 2011SP015320

PATIENT
  Age: 85 Year
  Sex: Male

DRUGS (10)
  1. VALSARTAN [Concomitant]
  2. AVODART [Concomitant]
  3. VESICARE [Concomitant]
  4. ZOCOR [Concomitant]
  5. ORGARAN [Suspect]
     Indication: ANTICOAGULANT THERAPY
     Dosage: SC ; 2000 IU;BID;SC
     Route: 058
     Dates: start: 20110304
  6. ORGARAN [Suspect]
     Indication: ANTICOAGULANT THERAPY
     Dosage: SC ; 2000 IU;BID;SC
     Route: 058
     Dates: start: 20100225, end: 20110301
  7. POLYETHYLENE GLYCOL [Concomitant]
  8. ACETAMINOPHEN [Concomitant]
  9. SINTROM [Suspect]
     Indication: ANTICOAGULANT THERAPY
     Dosage: 2 MG;QD;PO
     Route: 048
     Dates: end: 20110301
  10. ACETAMINOPHEN AND TRAMADOL HCL [Concomitant]

REACTIONS (18)
  - ATRIAL FIBRILLATION [None]
  - ANAEMIA [None]
  - GAIT DISTURBANCE [None]
  - COGNITIVE DISORDER [None]
  - RETROPERITONEAL HAEMATOMA [None]
  - HAEMOLYSIS [None]
  - URETHRAL DISORDER [None]
  - CONDITION AGGRAVATED [None]
  - HYPERKALAEMIA [None]
  - MALNUTRITION [None]
  - ABDOMINAL WALL HAEMATOMA [None]
  - RENAL FAILURE ACUTE [None]
  - ARRHYTHMIA [None]
  - APPARENT LIFE THREATENING EVENT [None]
  - DRUG INTERACTION [None]
  - NERVE COMPRESSION [None]
  - CARDIAC FAILURE [None]
  - MONOPLEGIA [None]
